FAERS Safety Report 4640376-3 (Version None)
Quarter: 2005Q2

REPORT INFORMATION
  Report Type: 
  Country: None (occurrence: None)
  Receive Date: 20050420
  Receipt Date: 20050405
  Transmission Date: 20051028
  Serious: Yes (Other)
  Sender: FDA-Public Use
  Company Number: US-GLAXOSMITHKLINE-A0552754A

PATIENT
  Age: 53 Year
  Sex: Female
  Weight: 69 kg

DRUGS (4)
  1. NICORETTE (MINT) [Suspect]
     Indication: SMOKING CESSATION THERAPY
     Route: 002
     Dates: start: 20010915
  2. NICODERM CQ [Suspect]
     Indication: SMOKING CESSATION THERAPY
     Route: 062
     Dates: start: 20010815, end: 20010915
  3. HORMONE REPLACEMENT [Concomitant]
     Route: 048
  4. VITAMINS [Concomitant]
     Indication: VISUAL DISTURBANCE

REACTIONS (13)
  - ANXIETY [None]
  - BLINDNESS [None]
  - DRUG ABUSER [None]
  - DRUG WITHDRAWAL SYNDROME [None]
  - HALITOSIS [None]
  - INTENTIONAL MISUSE [None]
  - MACULAR DEGENERATION [None]
  - NASOPHARYNGITIS [None]
  - NICOTINE DEPENDENCE [None]
  - PHARMACEUTICAL PRODUCT COMPLAINT [None]
  - SINUSITIS [None]
  - VISUAL FIELD DEFECT [None]
  - VITREOUS DISORDER [None]
